FAERS Safety Report 7202534-3 (Version None)
Quarter: 2010Q4

REPORT INFORMATION
  Report Type: 
  Country: None (occurrence: None)
  Receive Date: 20101229
  Receipt Date: 20101222
  Transmission Date: 20110411
  Serious: Yes (Hospitalization, Disabling)
  Sender: FDA-Public Use
  Company Number: CA-MERCK-1012USA03642

PATIENT
  Age: 63 Year
  Sex: Female
  Weight: 66 kg

DRUGS (7)
  1. FOSAMAX [Suspect]
     Route: 048
  2. CALCIUM (UNSPECIFIED) [Concomitant]
     Route: 048
  3. NOVO-NAPROX [Concomitant]
     Route: 065
  4. PREMARIN [Concomitant]
     Route: 048
  5. PROMETRIUM [Concomitant]
     Route: 048
  6. VITAMIN D (UNSPECIFIED) [Concomitant]
     Route: 048
  7. VITAMIN E [Concomitant]
     Route: 048

REACTIONS (5)
  - EMOTIONAL DISTRESS [None]
  - FALL [None]
  - FEMUR FRACTURE [None]
  - GAIT DISTURBANCE [None]
  - PAIN [None]
